FAERS Safety Report 9820707 (Version 1)
Quarter: 2013Q4

REPORT INFORMATION
  Report Type: Spontaneous
  Country: US (occurrence: None)
  Receive Date: 20131028
  Receipt Date: 20131028
  Transmission Date: 20140711
  Serious: No
  Sender: FDA-Public Use
  Company Number: 2013US001057

PATIENT
  Age: 57 Year
  Sex: Female
  Weight: 49.9 kg

DRUGS (8)
  1. ICLUSIG [Suspect]
     Indication: CHROMOSOME ANALYSIS ABNORMAL
     Dates: start: 20130104, end: 2013
  2. ICLUSIG [Suspect]
     Indication: CHRONIC MYELOID LEUKAEMIA
     Dates: start: 20130104, end: 2013
  3. ONDANSETRON (ONDANSETRON HYDROCHLORIDE) [Concomitant]
  4. LORAZEPAM [Concomitant]
  5. ACYCLOVIR [Concomitant]
  6. TRIAMCINOLONE ACETONIDE [Concomitant]
  7. CYCLOBENZAPRINE HYDROCHLORIDE [Concomitant]
  8. PHENERGAN (PROMETHAZINE) [Concomitant]

REACTIONS (5)
  - Bacterial infection [None]
  - Ecchymosis [None]
  - Mass [None]
  - Pain [None]
  - Back pain [None]
